FAERS Safety Report 8704856 (Version 2)
Quarter: 2013Q4

REPORT INFORMATION
  Report Type: Spontaneous
  Country: US (occurrence: US)
  Receive Date: 20120803
  Receipt Date: 20131105
  Transmission Date: 20140711
  Serious: Yes (Life-Threatening, Hospitalization)
  Sender: FDA-Public Use
  Company Number: US-009507513-1207USA011238

PATIENT
  Age: 70 Year
  Sex: Male

DRUGS (4)
  1. ZOCOR [Suspect]
     Dosage: 80 MG, UNK
     Route: 048
  2. VERAPAMIL [Suspect]
     Dosage: 360 MG, UNK
     Route: 048
  3. VERAPAMIL [Suspect]
     Dosage: 240 UNK, UNK
     Route: 048
  4. MARCUMAR [Suspect]
     Route: 048

REACTIONS (3)
  - Skin disorder [Unknown]
  - Rhabdomyolysis [Unknown]
  - Transaminases increased [Unknown]
